FAERS Safety Report 8141974-5 (Version None)
Quarter: 2012Q1

REPORT INFORMATION
  Report Type: 
  Country: None (occurrence: None)
  Receive Date: 20120216
  Receipt Date: 20120201
  Transmission Date: 20120608
  Serious: Yes (Hospitalization)
  Sender: FDA-Public Use
  Company Number: US-RB-033548-12

PATIENT
  Sex: Male
  Weight: 108 kg

DRUGS (22)
  1. PLACEBO [Suspect]
     Route: 048
  2. ASTELIN [Concomitant]
     Indication: PNEUMONIA
  3. CEFTRIAXONE SODIUM [Concomitant]
     Indication: PNEUMONIA
     Dosage: ONCE
     Dates: start: 20120109
  4. SODIUM CHLORIDE [Concomitant]
     Indication: PNEUMONIA
     Route: 042
     Dates: start: 20120109
  5. CIPRODEX OTIC [Concomitant]
     Indication: PNEUMONIA
     Dosage: 4 DROPS - TWICE A DAY
     Route: 050
     Dates: start: 20120110
  6. PHOS-NAK [Concomitant]
     Indication: PNEUMONIA
     Dosage: AS NEEDED
     Route: 048
     Dates: start: 20120110
  7. MUCINEX [Suspect]
     Route: 048
  8. GUAIFENESIN [Suspect]
     Route: 048
  9. MOTRIN [Concomitant]
     Indication: PNEUMONIA
     Dosage: ONCE
     Route: 048
     Dates: start: 20120109
  10. ACETAMINOPHEN [Concomitant]
     Indication: PNEUMONIA
     Dosage: AS NEEDED
     Route: 048
     Dates: start: 20120109
  11. BENADRYL ALLERGY AND COLD [Concomitant]
     Indication: NASOPHARYNGITIS
     Dosage: ONCE A DAY AT 11:00PM
     Route: 048
     Dates: start: 20120102
  12. SODIUM CHLORIDE [Concomitant]
     Dosage: AS NEEDED
     Route: 042
     Dates: start: 20120109
  13. GUAIFENESIN [Concomitant]
     Indication: PNEUMONIA
     Dosage: TWICE A DAY
     Route: 048
     Dates: start: 20120110
  14. LEVAQUIN [Concomitant]
     Indication: PNEUMONIA
     Dosage: ONCE
     Route: 042
     Dates: start: 20120109
  15. ZOLPIDEM TARTRATE [Concomitant]
     Indication: PNEUMONIA
     Dosage: ONCE A DAY
     Route: 048
     Dates: start: 20120110
  16. PLACEBO [Suspect]
     Route: 048
  17. SODIUM CHLORIDE [Concomitant]
     Indication: PNEUMONIA
     Dosage: AS NEEDED
     Route: 042
     Dates: start: 20120109
  18. INDOCIN [Concomitant]
     Indication: PNEUMONIA
     Dosage: AS NEEDED
     Route: 048
     Dates: start: 20120110
  19. MORPHINE SULFATE [Concomitant]
     Indication: PNEUMONIA
     Dosage: AS NEEDED
     Route: 042
     Dates: start: 20120110
  20. SODIUM CHLORIDE 0.9% [Concomitant]
     Indication: PNEUMONIA
     Route: 042
     Dates: start: 20120109
  21. SODIUM CHLORIDE [Concomitant]
     Dosage: AS NEEDED
     Route: 042
     Dates: start: 20120110
  22. XANAX [Concomitant]
     Indication: PNEUMONIA
     Route: 048
     Dates: start: 20120109

REACTIONS (11)
  - PNEUMONIA [None]
  - PYREXIA [None]
  - ARTHRALGIA [None]
  - DEHYDRATION [None]
  - MYALGIA [None]
  - OTORRHOEA [None]
  - CHEST PAIN [None]
  - HYPOACUSIS [None]
  - DYSPNOEA [None]
  - DIZZINESS [None]
  - CHILLS [None]
